FAERS Safety Report 12728344 (Version 2)
Quarter: 2017Q1

REPORT INFORMATION
  Report Type: Report from Study
  Country: DE (occurrence: DE)
  Receive Date: 20160909
  Receipt Date: 20170201
  Transmission Date: 20170428
  Serious: Yes (Other)
  Sender: FDA-Public Use
  Company Number: DE-BIOGEN-2016BI00288697

PATIENT
  Age: 33 Year
  Sex: Female

DRUGS (1)
  1. AVONEX [Suspect]
     Active Substance: INTERFERON BETA-1A
     Indication: MULTIPLE SCLEROSIS
     Route: 030
     Dates: start: 20160622

REACTIONS (6)
  - Limb discomfort [Recovered/Resolved with Sequelae]
  - Influenza like illness [Recovered/Resolved]
  - Uterine cancer [Not Recovered/Not Resolved]
  - Multiple sclerosis relapse [Recovered/Resolved with Sequelae]
  - Ataxia [Recovered/Resolved with Sequelae]
  - Cervix carcinoma [Recovered/Resolved]

NARRATIVE: CASE EVENT DATE: 201606
